FAERS Safety Report 13225489 (Version 1)
Quarter: 2017Q1

REPORT INFORMATION
  Report Type: Spontaneous
  Country: US (occurrence: US)
  Receive Date: 20170211
  Receipt Date: 20170211
  Transmission Date: 20170428
  Serious: No
  Sender: FDA-Public Use
  Company Number: None

PATIENT
  Age: 46 Year
  Sex: Female

DRUGS (1)
  1. IBRANCE [Suspect]
     Active Substance: PALBOCICLIB
     Indication: PRODUCT USED FOR UNKNOWN INDICATION
     Dosage: 100MG DAILY X21 DAYS, 7 DAYS PO
     Route: 048
     Dates: start: 20170103, end: 20170209

REACTIONS (2)
  - Therapy change [None]
  - Full blood count decreased [None]

NARRATIVE: CASE EVENT DATE: 20170209
